FAERS Safety Report 7606858-7 (Version None)
Quarter: 2011Q3

REPORT INFORMATION
  Report Type: 
  Country: None (occurrence: None)
  Receive Date: 20110713
  Receipt Date: 20110707
  Transmission Date: 20111222
  Serious: Yes (Other)
  Sender: FDA-Public Use
  Company Number: US-GLAXOSMITHKLINE-A0936510A

PATIENT
  Age: 53 Year
  Sex: Female
  Weight: 61.4 kg

DRUGS (3)
  1. LYRICA [Concomitant]
     Indication: NEUROPATHY PERIPHERAL
     Dosage: 150MG THREE TIMES PER DAY
     Dates: start: 20090101
  2. EFFEXOR XR [Concomitant]
     Indication: DEPRESSION
     Dosage: 75MG THREE TIMES PER DAY
  3. WELLBUTRIN [Suspect]
     Indication: PRODUCT USED FOR UNKNOWN INDICATION
     Dosage: 150MG UNKNOWN
     Route: 065
     Dates: start: 20110501, end: 20110101

REACTIONS (4)
  - HIP FRACTURE [None]
  - PAIN [None]
  - FALL [None]
  - PULMONARY MASS [None]
